FAERS Safety Report 9074306 (Version 1)
Quarter: 2013Q1

REPORT INFORMATION
  Report Type: Spontaneous
  Country: US (occurrence: US)
  Receive Date: 20130128
  Receipt Date: 20130128
  Transmission Date: 20140127
  Serious: No
  Sender: FDA-Public Use
  Company Number: US-ABBOTT-12P-163-0907558-00

PATIENT
  Age: 0 None
  Sex: Female

DRUGS (2)
  1. HUMIRA 40 MG/0.8 ML PEN [Suspect]
     Indication: MATERNAL EXPOSURE TIMING UNSPECIFIED
     Route: 063
  2. HUMIRA 40 MG/0.8 ML PEN [Suspect]
     Route: 064

REACTIONS (5)
  - Eczema [Not Recovered/Not Resolved]
  - Haemangioma [Not Recovered/Not Resolved]
  - Jaundice [Recovered/Resolved]
  - Foetal exposure during pregnancy [Unknown]
  - Exposure during breast feeding [Unknown]
